FAERS Safety Report 20430396 (Version 2)
Quarter: 2022Q1

REPORT INFORMATION
  Report Type: Report from Study
  Country: FR (occurrence: FR)
  Receive Date: 20220204
  Receipt Date: 20220330
  Transmission Date: 20220423
  Serious: Yes (Hospitalization)
  Sender: FDA-Public Use
  Company Number: FR-SERVIER-S20007053

PATIENT

DRUGS (5)
  1. PEGASPARGASE [Suspect]
     Active Substance: PEGASPARGASE
     Indication: Acute lymphocytic leukaemia
     Dosage: 1250 IU  D4
     Route: 042
     Dates: start: 20200529, end: 20200529
  2. VINCRISTINE SULFATE [Suspect]
     Active Substance: VINCRISTINE SULFATE
     Indication: Acute lymphocytic leukaemia
     Dosage: 1.4 MG ON  D1, D8, AND D15
     Route: 042
     Dates: start: 20200526, end: 20200602
  3. DOXORUBICIN HYDROCHLORIDE [Suspect]
     Active Substance: DOXORUBICIN HYDROCHLORIDE
     Indication: Acute lymphocytic leukaemia
     Dosage: 23 MG, ON D1, D8, D15
     Route: 042
     Dates: start: 20200526, end: 20200602
  4. TN UNSEPCIFIED [Concomitant]
     Indication: Acute lymphocytic leukaemia
     Dosage: 9.2 MG, ON D1 TO D14
     Route: 048
     Dates: start: 20200526, end: 20200608
  5. TN UNSEPCIFIED [Concomitant]
     Indication: Acute lymphocytic leukaemia
     Dosage: 12 MG, ON D4
     Route: 037
     Dates: start: 20200529, end: 20200529

REACTIONS (1)
  - Mucosal inflammation [Recovered/Resolved]

NARRATIVE: CASE EVENT DATE: 20200608
